FAERS Safety Report 8167702-5 (Version None)
Quarter: 2012Q1

REPORT INFORMATION
  Report Type: 
  Country: None (occurrence: None)
  Receive Date: 20120227
  Receipt Date: 20120222
  Transmission Date: 20120608
  Serious: Yes (Other)
  Sender: FDA-Public Use
  Company Number: TH-JNJFOC-20120210833

PATIENT

DRUGS (3)
  1. ENOXAPARIN [Concomitant]
     Indication: THROMBOSIS PROPHYLAXIS
  2. XARELTO [Suspect]
     Indication: ORTHOPEDIC PROCEDURE
     Route: 048
  3. XARELTO [Suspect]
     Indication: THROMBOSIS PROPHYLAXIS
     Route: 048

REACTIONS (1)
  - DEEP VEIN THROMBOSIS [None]
